FAERS Safety Report 10809386 (Version 3)
Quarter: 2015Q2

REPORT INFORMATION
  Report Type: Spontaneous
  Country: US (occurrence: None)
  Receive Date: 20150212
  Receipt Date: 20150422
  Transmission Date: 20150821
  Serious: Yes (Hospitalization)
  Sender: FDA-Public Use
  Company Number: 1224850-2015-00010

PATIENT
  Age: 37 Year
  Sex: Female
  Weight: 66 kg

DRUGS (26)
  1. PHOSLO [Suspect]
     Active Substance: CALCIUM ACETATE
     Indication: CHRONIC KIDNEY DISEASE
     Dates: start: 20121109, end: 20131014
  2. ZEMPLAR [Concomitant]
     Active Substance: PARICALCITOL
  3. TUMS [Concomitant]
     Active Substance: CALCIUM CARBONATE
  4. NORVASC [Concomitant]
     Active Substance: AMLODIPINE BESYLATE
  5. NATURALYTE [Concomitant]
     Active Substance: ACETIC ACID\SODIUM ACETATE
  6. TRAZODONE [Concomitant]
     Active Substance: TRAZODONE HYDROCHLORIDE
  7. CALCIFEROL [Concomitant]
     Active Substance: ERGOCALCIFEROL
  8. NORMAL SALINE [Concomitant]
     Active Substance: SODIUM CHLORIDE
  9. SODIUM BICARBONATE. [Concomitant]
     Active Substance: SODIUM BICARBONATE
  10. NEPHRO-CAPS [Concomitant]
  11. EPOGEN [Concomitant]
     Active Substance: ERYTHROPOIETIN
  12. BABY ASPIRIN [Concomitant]
     Active Substance: ASPIRIN
  13. GABAPENTIN. [Concomitant]
     Active Substance: GABAPENTIN
  14. RENVELA [Concomitant]
     Active Substance: SEVELAMER CARBONATE
  15. FMC BLOOD LINES [Concomitant]
  16. HUMALOG [Concomitant]
     Active Substance: INSULIN LISPRO
  17. LANTUS [Concomitant]
     Active Substance: INSULIN GLARGINE
  18. LISINOPRIL. [Concomitant]
     Active Substance: LISINOPRIL
  19. DIALYZER [Concomitant]
  20. GRANULFO [Concomitant]
  21. ZOLOFT [Concomitant]
     Active Substance: SERTRALINE HYDROCHLORIDE
  22. NEURONTIN [Concomitant]
     Active Substance: GABAPENTIN
  23. COREG [Concomitant]
     Active Substance: CARVEDILOL
  24. FRESENIUS 2009K DIALYSIS MACHINE DIALYZER [Concomitant]
  25. LOVENOX [Concomitant]
     Active Substance: ENOXAPARIN SODIUM
  26. COUMADIN [Concomitant]
     Active Substance: WARFARIN SODIUM

REACTIONS (2)
  - Staphylococcal bacteraemia [None]
  - Blood culture positive [None]

NARRATIVE: CASE EVENT DATE: 20120613
